FAERS Safety Report 17719177 (Version 1)
Quarter: 2020Q2

REPORT INFORMATION
  Report Type: Report from Study
  Country: MX (occurrence: MX)
  Receive Date: 20200428
  Receipt Date: 20200428
  Transmission Date: 20200714
  Serious: Yes (Life-Threatening, Other)
  Sender: FDA-Public Use
  Company Number: NVSC2020MX112092

PATIENT
  Sex: Male
  Weight: 125.3 kg

DRUGS (1)
  1. METFORMIN [Suspect]
     Active Substance: METFORMIN HYDROCHLORIDE
     Indication: TYPE 2 DIABETES MELLITUS
     Dosage: 500 MG, Q12H
     Route: 048

REACTIONS (8)
  - Obesity [Unknown]
  - Diabetic retinopathy [Unknown]
  - Hypertension [Unknown]
  - Vitreous haemorrhage [Unknown]
  - Diabetic retinal oedema [Unknown]
  - Tractional retinal detachment [Unknown]
  - Cataract [Unknown]
  - Chronic kidney disease [Unknown]
